FAERS Safety Report 16154644 (Version 5)
Quarter: 2020Q1

REPORT INFORMATION
  Report Type: Spontaneous
  Country: PL (occurrence: PL)
  Receive Date: 20190403
  Receipt Date: 20200218
  Transmission Date: 20200409
  Serious: Yes (Other)
  Sender: FDA-Public Use
  Company Number: PHHY2019PL075121

PATIENT
  Age: 49 Year
  Sex: Male

DRUGS (11)
  1. RITUXIMAB. [Suspect]
     Active Substance: RITUXIMAB
     Indication: DIFFUSE LARGE B-CELL LYMPHOMA
     Dosage: 375 MG/M2
     Route: 065
     Dates: start: 2017
  2. VINBLASTINE [Suspect]
     Active Substance: VINBLASTINE
     Indication: DIFFUSE LARGE B-CELL LYMPHOMA
     Dosage: 10 MG, QD
     Route: 065
     Dates: start: 2017
  3. GRANULOCYTE COLONY STIMULATING FACTOR [Concomitant]
     Active Substance: GRANULOCYTE COLONY-STIMULATING FACTOR NOS
     Indication: PROPHYLAXIS
     Dosage: UNK
     Route: 065
     Dates: start: 2017
  4. VINBLASTINE [Suspect]
     Active Substance: VINBLASTINE
     Dosage: 50% DOSE REDUCED
     Route: 065
     Dates: start: 2017
  5. RITUXIMAB. [Suspect]
     Active Substance: RITUXIMAB
     Dosage: DOSE REDUCED BY 50%
     Route: 065
     Dates: start: 2017
  6. MYOCET [Suspect]
     Active Substance: DOXORUBICIN
     Dosage: 100 MG, QD
     Route: 065
     Dates: start: 2017
  7. CYCLOPHOSPHAMIDE. [Suspect]
     Active Substance: CYCLOPHOSPHAMIDE
     Indication: DIFFUSE LARGE B-CELL LYMPHOMA
     Dosage: DOSE REDUCED BY 50%
     Route: 065
     Dates: start: 2017
  8. MYOCET [Suspect]
     Active Substance: DOXORUBICIN
     Indication: DIFFUSE LARGE B-CELL LYMPHOMA
     Dosage: 50% DOSE REDUCED
     Route: 065
     Dates: start: 2017
  9. PREDNISONE. [Suspect]
     Active Substance: PREDNISONE
     Indication: DIFFUSE LARGE B-CELL LYMPHOMA
     Dosage: 100 MG, QD
     Route: 065
     Dates: start: 2017
  10. PREDNISONE. [Suspect]
     Active Substance: PREDNISONE
     Dosage: 50% DOSE REDUCED
     Route: 065
     Dates: start: 2017
  11. CYCLOPHOSPHAMIDE. [Suspect]
     Active Substance: CYCLOPHOSPHAMIDE
     Dosage: 750 MG/M2
     Route: 065
     Dates: start: 2017

REACTIONS (4)
  - Bone marrow toxicity [Unknown]
  - Pneumonia [Unknown]
  - Febrile neutropenia [Unknown]
  - Infection [Unknown]

NARRATIVE: CASE EVENT DATE: 2017
